FAERS Safety Report 16827882 (Version 2)
Quarter: 2019Q4

REPORT INFORMATION
  Report Type: Spontaneous
  Country: US (occurrence: US)
  Receive Date: 20190919
  Receipt Date: 20191017
  Transmission Date: 20200122
  Serious: No
  Sender: FDA-Public Use
  Company Number: US-PFIZER INC-2019353291

PATIENT
  Age: 38 Year
  Sex: Female
  Weight: 56.69 kg

DRUGS (3)
  1. PREGABALIN. [Suspect]
     Active Substance: PREGABALIN
     Indication: SEIZURE
     Dosage: 75 MG, 3X/DAY
     Route: 048
     Dates: start: 201909, end: 201909
  2. PREGABALIN. [Suspect]
     Active Substance: PREGABALIN
     Indication: OCCIPITAL NEURALGIA
  3. PREGABALIN. [Suspect]
     Active Substance: PREGABALIN
     Indication: FIBROMYALGIA

REACTIONS (9)
  - Hypersensitivity [Unknown]
  - Lip swelling [Recovering/Resolving]
  - Drug ineffective [Unknown]
  - Hypoaesthesia oral [Recovering/Resolving]
  - Paraesthesia oral [Unknown]
  - Feeling abnormal [Not Recovered/Not Resolved]
  - Back pain [Unknown]
  - Hypoaesthesia [Recovering/Resolving]
  - Pain [Unknown]

NARRATIVE: CASE EVENT DATE: 201909
